FAERS Safety Report 5320813-1 (Version None)
Quarter: 2007Q2

REPORT INFORMATION
  Report Type: 
  Country: None (occurrence: None)
  Receive Date: 20070502
  Receipt Date: 20070418
  Transmission Date: 20071010
  Serious: Yes (Hospitalization)
  Sender: FDA-Public Use
  Company Number: US019326

PATIENT
  Age: 59 Year
  Sex: Male

DRUGS (14)
  1. PROVIGIL [Suspect]
     Indication: SLEEP APNOEA SYNDROME
     Dosage: 200 MG QHS ORAL
     Route: 048
     Dates: start: 20061201, end: 20070101
  2. METHADONE HCL [Suspect]
     Indication: BACK PAIN
     Dosage: 20 MG TID ORAL
     Route: 048
     Dates: start: 20070101
  3. METHADONE HCL [Suspect]
     Indication: BACK PAIN
     Dosage: 30 MG TID ORAL
     Route: 048
     Dates: start: 20070119
  4. CYMBALTA [Concomitant]
  5. CYANOCOBALAMIN [Concomitant]
  6. KLONOPIN [Concomitant]
  7. REMERON [Concomitant]
  8. PROMETHAZINE [Concomitant]
  9. MUCINEX [Concomitant]
  10. LIPITOR [Concomitant]
  11. COREG [Concomitant]
  12. ANDROGEL [Concomitant]
  13. NITROGLYCERIN [Concomitant]
  14. LASIX [Concomitant]

REACTIONS (6)
  - DELIRIUM [None]
  - DRUG DOSE OMISSION [None]
  - DRUG INTERACTION [None]
  - DRUG WITHDRAWAL SYNDROME [None]
  - INADEQUATE ANALGESIA [None]
  - TREATMENT NONCOMPLIANCE [None]
